FAERS Safety Report 11177673 (Version 3)
Quarter: 2016Q1

REPORT INFORMATION
  Report Type: Spontaneous
  Country: US (occurrence: US)
  Receive Date: 20150610
  Receipt Date: 20160331
  Transmission Date: 20160525
  Serious: No
  Sender: FDA-Public Use
  Company Number: US-PFIZER INC-2015192279

PATIENT
  Age: 76 Year
  Sex: Female
  Weight: 72 kg

DRUGS (13)
  1. COQ 10 [Concomitant]
     Active Substance: UBIDECARENONE
     Dosage: UNK
  2. WELLBUTRIN SR [Concomitant]
     Active Substance: BUPROPION HYDROCHLORIDE
     Dosage: 150 MG, UNK (150 MG/15 HOURS)
  3. ARTHROTEC [Suspect]
     Active Substance: DICLOFENAC SODIUM\MISOPROSTOL
     Indication: ARTHRITIS
     Dosage: 1 DF, 3X/DAY (200MCG/50 MG, 3X/DAY)
  4. VITAMIN D3 [Concomitant]
     Active Substance: CHOLECALCIFEROL
     Dosage: 400 MG, UNK
  5. LEVOTHYROXINE. [Concomitant]
     Active Substance: LEVOTHYROXINE
     Dosage: 88 UG, UNK
  6. PENNSAID [Concomitant]
     Active Substance: DICLOFENAC SODIUM
     Dosage: 2 %, UNK (2% SOLUTION)
  7. VITAMIN B COMPLEX [Concomitant]
     Active Substance: CYANOCOBALAMIN\DEXPANTHENOL\NIACINAMIDE\PYRIDOXINE HYDROCHLORIDE\RIBOFLAVIN 5^-PHOSPHATE SODIUM\THIAMINE HYDROCHLORIDE\VITAMIN B COMPLEX
     Dosage: UNK (B COMPLEX 50)
  8. ESTRADIOL. [Concomitant]
     Active Substance: ESTRADIOL
     Dosage: 2 MG, UNK
  9. DEXILANT [Concomitant]
     Active Substance: DEXLANSOPRAZOLE
     Dosage: 60 MG, UNK
  10. ACETAMINOPHEN W/HYDROCODONE [Concomitant]
     Active Substance: ACETAMINOPHEN\HYDROCODONE
     Dosage: UNK (PARACETAMOL 325 MG -HYDROCODONE BITARTRATE 5 MG)
  11. LISINOPRIL. [Concomitant]
     Active Substance: LISINOPRIL
     Dosage: 40 MG, UNK
  12. VOLTAREN [Concomitant]
     Active Substance: DICLOFENAC SODIUM
     Dosage: 1 %, UNK
  13. PENNSAID [Concomitant]
     Active Substance: DICLOFENAC SODIUM
     Dosage: UNK (1-5 % LIQUID)

REACTIONS (1)
  - Drug ineffective [Unknown]
